FAERS Safety Report 6964045-X (Version None)
Quarter: 2010Q3

REPORT INFORMATION
  Report Type: 
  Country: None (occurrence: None)
  Receive Date: 20100902
  Receipt Date: 20100825
  Transmission Date: 20110219
  Serious: Yes (Other)
  Sender: FDA-Public Use
  Company Number: US-AMGEN-QUU420917

PATIENT
  Sex: Female
  Weight: 81.7 kg

DRUGS (2)
  1. ENBREL [Suspect]
     Indication: RHEUMATOID ARTHRITIS
     Route: 058
     Dates: start: 20080601
  2. METHOTREXATE [Concomitant]

REACTIONS (10)
  - ALOPECIA [None]
  - CHILLS [None]
  - DIARRHOEA [None]
  - FATIGUE [None]
  - GASTROINTESTINAL INFECTION [None]
  - HYPERTENSION [None]
  - IMMUNOSUPPRESSION [None]
  - INFLUENZA LIKE ILLNESS [None]
  - PYREXIA [None]
  - THYROID NEOPLASM [None]
